FAERS Safety Report 6037434-8 (Version None)
Quarter: 2009Q1

REPORT INFORMATION
  Report Type: 
  Country: None (occurrence: None)
  Receive Date: 20090114
  Receipt Date: 20090107
  Transmission Date: 20090719
  Serious: Yes (Other)
  Sender: FDA-Public Use
  Company Number: PT-BRISTOL-MYERS SQUIBB COMPANY-13794664

PATIENT
  Age: 56 Year
  Sex: Female
  Weight: 70 kg

DRUGS (3)
  1. SPRYCEL [Suspect]
     Indication: CHRONIC MYELOID LEUKAEMIA
     Dosage: POSOLOGY WAS CHANGED TO 100MG ONCE DAILY;DOSE REDUCED TO 50MG/DAY
     Route: 048
     Dates: start: 20070101
  2. ALPRAZOLAM [Concomitant]
     Route: 048
     Dates: start: 20050101
  3. SERTRALINE [Concomitant]
     Route: 048
     Dates: start: 20060101

REACTIONS (2)
  - PLEURAL HAEMORRHAGE [None]
  - UVEITIS [None]
